FAERS Safety Report 14167021 (Version 1)
Quarter: 2017Q4

REPORT INFORMATION
  Report Type: Report from Study
  Country: None (occurrence: US)
  Receive Date: 20171108
  Receipt Date: 20171108
  Transmission Date: 20180321
  Serious: Yes (Hospitalization)
  Sender: FDA-Public Use
  Company Number: US-ABBVIE-17K-163-2039698-00

PATIENT
  Age: 58 Year
  Sex: Female

DRUGS (3)
  1. HUMIRA [Suspect]
     Active Substance: ADALIMUMAB
     Indication: RHEUMATOID ARTHRITIS
     Route: 058
     Dates: start: 20170615, end: 2017
  2. HUMIRA [Suspect]
     Active Substance: ADALIMUMAB
     Route: 058
     Dates: start: 2017, end: 201709
  3. OXYCODONE [Concomitant]
     Active Substance: OXYCODONE
     Indication: PAIN

REACTIONS (23)
  - Pruritus generalised [Not Recovered/Not Resolved]
  - Hypersensitivity [Unknown]
  - Injection site pain [Not Recovered/Not Resolved]
  - Joint lock [Not Recovered/Not Resolved]
  - Injection site papule [Not Recovered/Not Resolved]
  - Vomiting [Unknown]
  - Incorrect dose administered [Unknown]
  - Musculoskeletal stiffness [Not Recovered/Not Resolved]
  - Fatigue [Not Recovered/Not Resolved]
  - Injection site erythema [Not Recovered/Not Resolved]
  - Injection site pruritus [Not Recovered/Not Resolved]
  - Injection site pruritus [Recovered/Resolved]
  - Blood pressure decreased [Unknown]
  - Joint swelling [Not Recovered/Not Resolved]
  - Device issue [Not Recovered/Not Resolved]
  - Contusion [Recovered/Resolved]
  - Viral sepsis [Unknown]
  - Eye disorder [Unknown]
  - Pruritus [Recovered/Resolved]
  - Swelling [Unknown]
  - Urticaria [Not Recovered/Not Resolved]
  - Paraesthesia [Not Recovered/Not Resolved]
  - Injection site bruising [Recovered/Resolved]

NARRATIVE: CASE EVENT DATE: 2017
